FAERS Safety Report 11798994 (Version 1)
Quarter: 2015Q4

REPORT INFORMATION
  Report Type: Report from Study
  Country: US (occurrence: US)
  Receive Date: 20151203
  Receipt Date: 20151203
  Transmission Date: 20160305
  Serious: No
  Sender: FDA-Public Use
  Company Number: US-AMGEN-USASL2015118585

PATIENT
  Sex: Female

DRUGS (1)
  1. REPATHA [Suspect]
     Active Substance: EVOLOCUMAB
     Indication: PRODUCT USED FOR UNKNOWN INDICATION
     Dosage: UNK
     Route: 065

REACTIONS (13)
  - Muscle spasms [Unknown]
  - Back pain [Recovering/Resolving]
  - Pain in extremity [Unknown]
  - Pain [Unknown]
  - Myalgia [Unknown]
  - Chest discomfort [Unknown]
  - Dizziness [Unknown]
  - Headache [Unknown]
  - Respiratory tract congestion [Unknown]
  - Rhinorrhoea [Unknown]
  - Oropharyngeal pain [Unknown]
  - Restlessness [Unknown]
  - Neck pain [Recovering/Resolving]

NARRATIVE: CASE EVENT DATE: 201511
